FAERS Safety Report 26055771 (Version 1)
Quarter: 2025Q4

REPORT INFORMATION
  Report Type: Spontaneous
  Country: ZA (occurrence: ZA)
  Receive Date: 20251117
  Receipt Date: 20251117
  Transmission Date: 20260118
  Serious: Yes (Other)
  Sender: ASTELLAS
  Company Number: ZA-ASTELLAS-2025-AER-062398

PATIENT
  Age: 81 Year
  Sex: Male

DRUGS (6)
  1. MIRABEGRON [Suspect]
     Active Substance: MIRABEGRON
     Indication: Pollakiuria
     Route: 065
  2. Glucotrin XR [Concomitant]
     Indication: Diabetes mellitus
     Route: 065
  3. Mezibe Plus [Concomitant]
     Indication: Diabetes mellitus
     Route: 065
  4. Serdep [Concomitant]
     Indication: Product used for unknown indication
     Route: 065
  5. MIRTAZAPINE [Concomitant]
     Active Substance: MIRTAZAPINE
     Indication: Product used for unknown indication
     Route: 065
  6. DOXAZOSIN MESYLATE [Concomitant]
     Active Substance: DOXAZOSIN MESYLATE
     Indication: Blood pressure abnormal
     Route: 065

REACTIONS (7)
  - Granulomatous liver disease [Unknown]
  - Prostate cancer metastatic [Unknown]
  - Aortic aneurysm [Unknown]
  - Diverticulum intestinal [Unknown]
  - Bladder trabeculation [Unknown]
  - Back pain [Unknown]
  - Prostatic specific antigen increased [Unknown]

NARRATIVE: CASE EVENT DATE: 20240221
